FAERS Safety Report 4754549-2 (Version None)
Quarter: 2005Q3

REPORT INFORMATION
  Report Type: 
  Country: None (occurrence: None)
  Receive Date: 20050829
  Receipt Date: 20050819
  Transmission Date: 20060218
  Serious: Yes (Other)
  Sender: FDA-Public Use
  Company Number: PHEH2005US09291

PATIENT
  Age: 84 Year
  Sex: Female

DRUGS (1)
  1. ZOMETA [Suspect]

REACTIONS (7)
  - ASEPTIC NECROSIS BONE [None]
  - BONE DISORDER [None]
  - BONE SCAN ABNORMAL [None]
  - PAIN [None]
  - TOOTH EXTRACTION [None]
  - TOOTHACHE [None]
  - TRIGEMINAL NEURALGIA [None]
